FAERS Safety Report 20967517 (Version 1)
Quarter: 2022Q2

REPORT INFORMATION
  Report Type: Spontaneous
  Country: US (occurrence: None)
  Receive Date: 20220616
  Receipt Date: 20220616
  Transmission Date: 20220721
  Serious: Yes (Other)
  Sender: FDA-Public Use
  Company Number: None

PATIENT
  Sex: Female

DRUGS (6)
  1. HUMIRA [Suspect]
     Active Substance: ADALIMUMAB
     Indication: Colitis ulcerative
     Dosage: 40 MG/0.4ML?? INJECT 40MG UNDER THE SKIN (SUBCUTANEOUS INJECTION) EVERY 2 WEEKS?
     Route: 058
     Dates: start: 20211105
  2. HUMIRA [Concomitant]
     Active Substance: ADALIMUMAB
  3. HUMIRA PEN KIT CD/UC/HS [Concomitant]
  4. HYDROXYZ PAM CAP [Concomitant]
  5. ONDANSETRON TAB [Concomitant]
  6. TRAMADOL HCL TAB [Concomitant]

REACTIONS (3)
  - Dyspnoea [None]
  - Depression [None]
  - Asthenia [None]
